FAERS Safety Report 8975899 (Version 2)
Quarter: 2013Q2

REPORT INFORMATION
  Report Type: Spontaneous
  Country: US (occurrence: US)
  Receive Date: 20121219
  Receipt Date: 20130621
  Transmission Date: 20140414
  Serious: Yes (Life-Threatening, Hospitalization, Disabling, Other)
  Sender: FDA-Public Use
  Company Number: US-GLAXOSMITHKLINE-A1005793A

PATIENT
  Age: 70 Year
  Sex: Female

DRUGS (23)
  1. VOTRIENT [Suspect]
     Indication: LEIOMYOSARCOMA METASTATIC
     Dosage: 200MG SEE DOSAGE TEXT
     Route: 065
     Dates: start: 201210, end: 201212
  2. CLARITIN [Concomitant]
  3. OMEPRAZOLE [Concomitant]
  4. ONDANSETRON [Concomitant]
  5. TRIAMTERENE + HYDROCHLOROTHIAZIDE [Concomitant]
  6. ASTELIN [Concomitant]
  7. B COMPLEX VITAMINS [Concomitant]
  8. TESSALON [Concomitant]
  9. CALCIUM CITRATE [Concomitant]
  10. CENTRUM SILVER [Concomitant]
  11. BENTYL [Concomitant]
  12. FLAXSEED OIL [Concomitant]
  13. FLONASE [Concomitant]
  14. UNKNOWN MEDICATION [Concomitant]
  15. NORCO [Concomitant]
  16. VITAMIN C WITH IRON [Concomitant]
  17. SYNTHROID [Concomitant]
  18. EMLA [Concomitant]
  19. ATIVAN [Concomitant]
  20. PAXIL [Concomitant]
  21. COMPAZINE [Concomitant]
  22. PROPYLENE GLYCOL [Concomitant]
  23. UNKNOWN MEDICATION [Concomitant]

REACTIONS (14)
  - Cardiac failure congestive [Recovering/Resolving]
  - Cardiogenic shock [Recovering/Resolving]
  - Liver injury [Recovering/Resolving]
  - Cardiomyopathy [Recovering/Resolving]
  - Dyspnoea [Recovering/Resolving]
  - Chest discomfort [Recovering/Resolving]
  - Fatigue [Recovering/Resolving]
  - Left ventricular dysfunction [Recovering/Resolving]
  - Ejection fraction decreased [Recovering/Resolving]
  - Bundle branch block left [Recovering/Resolving]
  - Liver function test abnormal [Recovering/Resolving]
  - Euthyroid sick syndrome [Recovering/Resolving]
  - Anaemia [Recovering/Resolving]
  - Transferrin saturation decreased [Recovering/Resolving]
